FAERS Safety Report 5760991-3 (Version None)
Quarter: 2008Q2

REPORT INFORMATION
  Report Type: 
  Country: None (occurrence: None)
  Receive Date: 20080606
  Receipt Date: 20080528
  Transmission Date: 20081010
  Serious: Yes (Hospitalization)
  Sender: FDA-Public Use
  Company Number: US-BAYER-200824044NA

PATIENT
  Sex: Male

DRUGS (14)
  1. NEXAVAR [Suspect]
     Indication: METASTATIC RENAL CELL CARCINOMA
     Route: 048
     Dates: end: 20080101
  2. NEXAVAR [Suspect]
     Dosage: AS USED: 400 MG  UNIT DOSE: 200 MG
     Route: 048
     Dates: start: 20080104, end: 20080105
  3. PROTONIX [Concomitant]
     Dosage: TOTAL DAILY DOSE: 40 MG
     Route: 048
     Dates: end: 20080104
  4. AMIODARONE HCL [Concomitant]
  5. ASPIRIN [Concomitant]
  6. ENALAPRIL MALEATE [Concomitant]
  7. LASIX [Concomitant]
  8. LEVOTHYROXINE SODIUM [Concomitant]
  9. ZOCOR [Concomitant]
  10. REQUIP [Concomitant]
  11. ZANTAC [Concomitant]
  12. UROXATRAL [Concomitant]
  13. METOPROLOL TARTRATE [Concomitant]
  14. TRAMADOL HCL [Concomitant]
     Indication: PAIN
     Route: 048

REACTIONS (3)
  - ASTHENIA [None]
  - HYPOKALAEMIA [None]
  - WEIGHT DECREASED [None]
